FAERS Safety Report 11516110 (Version 1)
Quarter: 2015Q3

REPORT INFORMATION
  Report Type: Spontaneous
  Country: FR (occurrence: FR)
  Receive Date: 20150917
  Receipt Date: 20150917
  Transmission Date: 20151125
  Serious: Yes (Hospitalization)
  Sender: FDA-Public Use
  Company Number: FR-HOSPIRA-3001923

PATIENT
  Age: 27 Year
  Sex: Female

DRUGS (12)
  1. ACUPAN [Suspect]
     Active Substance: NEFOPAM HYDROCHLORIDE
     Indication: ANAESTHESIA PROCEDURE
     Dates: start: 20150723, end: 20150723
  2. DROLEPTAN [Suspect]
     Active Substance: DROPERIDOL
     Indication: ANAESTHESIA PROCEDURE
     Dates: start: 20150723, end: 20150723
  3. ATROPINE SULFATE AGUETTANT [Suspect]
     Active Substance: ATROPINE SULFATE
     Indication: ANAESTHESIA PROCEDURE
     Dates: start: 20150723, end: 20150723
  4. DEXAMETHASONE MERCK /00016002/ [Suspect]
     Active Substance: DEXAMETHASONE SODIUM PHOSPHATE
     Indication: ANAESTHESIA PROCEDURE
     Dates: start: 20150723, end: 20150723
  5. PROSTIGMINE /00045902/ [Suspect]
     Active Substance: NEOSTIGMINE BROMIDE
     Indication: ANAESTHESIA PROCEDURE
     Dates: start: 20150723, end: 20150723
  6. PROPOFOL. [Suspect]
     Active Substance: PROPOFOL
     Indication: ANAESTHESIA PROCEDURE
     Dates: start: 20150723, end: 20150723
  7. SUFENTA [Suspect]
     Active Substance: SUFENTANIL CITRATE
     Indication: ANAESTHESIA PROCEDURE
     Dates: start: 20150723, end: 20150723
  8. AMOXICILLIN CLAVULANIC ACID [Suspect]
     Active Substance: AMOXICILLIN\CLAVULANIC ACID
     Indication: PROPHYLAXIS
     Dates: start: 20150723, end: 20150723
  9. CONTRAMAL [Suspect]
     Active Substance: TRAMADOL HYDROCHLORIDE
     Indication: ANAESTHESIA PROCEDURE
     Dates: start: 20150723, end: 20150723
  10. KETAMINE PANPHARMA [Suspect]
     Active Substance: KETAMINE
     Indication: ANAESTHESIA PROCEDURE
     Dates: start: 20150723, end: 20150723
  11. SEVOFLURANE. [Suspect]
     Active Substance: SEVOFLURANE
     Indication: ANAESTHESIA PROCEDURE
     Dates: start: 20150723, end: 20150723
  12. ATRACURIUM BESILATE [Suspect]
     Active Substance: ATRACURIUM BESYLATE
     Indication: ANAESTHESIA PROCEDURE
     Dates: start: 20150723, end: 20150723

REACTIONS (1)
  - Acute kidney injury [Recovering/Resolving]

NARRATIVE: CASE EVENT DATE: 20150724
